FAERS Safety Report 21642189 (Version 2)
Quarter: 2023Q1

REPORT INFORMATION
  Report Type: Report from Study
  Country: TH (occurrence: TH)
  Receive Date: 20221125
  Receipt Date: 20230110
  Transmission Date: 20230417
  Serious: Yes (Other)
  Sender: FDA-Public Use
  Company Number: TH-JNJFOC-20221138835

PATIENT
  Sex: Male

DRUGS (2)
  1. BORTEZOMIB [Suspect]
     Active Substance: BORTEZOMIB
     Indication: Plasma cell myeloma
     Dosage: 4 MILLIGRAM
     Route: 058
     Dates: start: 20210630, end: 20211021
  2. DARATUMUMAB [Suspect]
     Active Substance: DARATUMUMAB
     Indication: Plasma cell myeloma
     Dosage: 1000 MILLIGRAM
     Route: 041
     Dates: start: 20221115

REACTIONS (1)
  - Plasma cell myeloma recurrent [Not Recovered/Not Resolved]

NARRATIVE: CASE EVENT DATE: 20221116
